FAERS Safety Report 19077163 (Version 1)
Quarter: 2021Q1

REPORT INFORMATION
  Report Type: Spontaneous
  Country: US (occurrence: US)
  Receive Date: 20210331
  Receipt Date: 20210331
  Transmission Date: 20210420
  Serious: Yes (Hospitalization)
  Sender: FDA-Public Use
  Company Number: US-HIKMA PHARMACEUTICALS USA INC.-US-H14001-21-01482

PATIENT
  Age: 43 Year
  Sex: Male

DRUGS (6)
  1. PREDNISONE. [Suspect]
     Active Substance: PREDNISONE
     Indication: IMMUNOSUPPRESSION
     Dosage: UNKNOWN
     Route: 065
  2. MYCOPHENOLATE MOFETIL. [Suspect]
     Active Substance: MYCOPHENOLATE MOFETIL
     Indication: IMMUNOSUPPRESSION
     Dosage: UNKNOWN
     Route: 065
  3. VALGANCICLOVIR. [Concomitant]
     Active Substance: VALGANCICLOVIR
     Indication: PROPHYLAXIS
     Dosage: UNKNOWN
     Route: 065
  4. PREDNISONE. [Suspect]
     Active Substance: PREDNISONE
     Dosage: INCREASED
     Route: 065
  5. TACROLIMUS. [Suspect]
     Active Substance: TACROLIMUS
     Indication: IMMUNOSUPPRESSION
     Dosage: 4?6 NG/ML
     Route: 065
  6. PREDNISONE. [Suspect]
     Active Substance: PREDNISONE
     Dosage: DECREASED
     Route: 065

REACTIONS (9)
  - Graft versus host disease [Unknown]
  - Cytomegalovirus colitis [Unknown]
  - Pancytopenia [Unknown]
  - Clostridium difficile colitis [Unknown]
  - Disseminated varicella [Unknown]
  - Pneumocystis jirovecii pneumonia [Unknown]
  - Bacteroides infection [Unknown]
  - Candida infection [Unknown]
  - Bronchopulmonary aspergillosis [Unknown]
